FAERS Safety Report 24612048 (Version 2)
Quarter: 2024Q4

REPORT INFORMATION
  Report Type: Report from Study
  Country: US (occurrence: US)
  Receive Date: 20241113
  Receipt Date: 20241227
  Transmission Date: 20250115
  Serious: Yes (Hospitalization)
  Sender: AMGEN
  Company Number: US-AMGEN-USASP2024221265

PATIENT
  Age: 36 Year
  Sex: Female
  Weight: 80.272 kg

DRUGS (8)
  1. BLINCYTO [Suspect]
     Active Substance: BLINATUMOMAB
     Indication: Minimal residual disease
     Dosage: 9 MICROGRAM
     Route: 040
     Dates: start: 20241029, end: 202410
  2. BLINCYTO [Suspect]
     Active Substance: BLINATUMOMAB
     Dosage: 28 MICROGRAM, DOSE INCREASED
     Route: 065
     Dates: start: 20241030, end: 20241101
  3. BLINCYTO [Suspect]
     Active Substance: BLINATUMOMAB
     Dosage: UNK
     Route: 040
     Dates: start: 20241103, end: 202411
  4. BLINCYTO [Suspect]
     Active Substance: BLINATUMOMAB
     Dosage: 9 MICROGRAM, CONTINUING
     Route: 040
     Dates: start: 20241106, end: 20241125
  5. BLINCYTO [Suspect]
     Active Substance: BLINATUMOMAB
     Dosage: UNK, CONTINUING, NEXT CYCLE
     Route: 040
     Dates: start: 20241209
  6. SODIUM CHLORIDE [Concomitant]
     Active Substance: SODIUM CHLORIDE
     Dosage: UNK UNK, QD AS NEEDED
  7. SULFAMETHOXAZOLE AND TRIMETHOPRIM [Concomitant]
     Active Substance: SULFAMETHOXAZOLE\TRIMETHOPRIM
     Indication: Prophylaxis
     Dosage: 800 MG-160 MG 3 TIMES A WEEK
     Route: 048
  8. URSODIOL [Concomitant]
     Active Substance: URSODIOL
     Dosage: 300 MILLIGRAM, BID
     Route: 048

REACTIONS (9)
  - Immune effector cell-associated neurotoxicity syndrome [Recovering/Resolving]
  - Chest discomfort [Recovering/Resolving]
  - Seizure [Recovering/Resolving]
  - Confusional state [Recovering/Resolving]
  - Pyrexia [Recovering/Resolving]
  - Dyspnoea exertional [Unknown]
  - Diarrhoea [Unknown]
  - Cough [Unknown]
  - Infection [Unknown]

NARRATIVE: CASE EVENT DATE: 20240101
